FAERS Safety Report 22636998 (Version 1)
Quarter: 2023Q2

REPORT INFORMATION
  Report Type: Spontaneous
  Country: IT (occurrence: IT)
  Receive Date: 20230626
  Receipt Date: 20230626
  Transmission Date: 20230721
  Serious: Yes (Hospitalization)
  Sender: FDA-Public Use
  Company Number: None

PATIENT
  Age: 9 Year
  Sex: Male
  Weight: 19 kg

DRUGS (12)
  1. OMEPRAZOLE [Suspect]
     Active Substance: OMEPRAZOLE
     Indication: Product used for unknown indication
     Dosage: 20 MILLIGRAM, QD (20 MG/DAY) (PARENTERAL ROUTE)
     Route: 065
  2. AMIODARONE [Suspect]
     Active Substance: AMIODARONE
     Indication: Product used for unknown indication
     Dosage: 100 MILLIGRAM, QD (AMIODARONE 100 MG/DAYS)
     Route: 048
  3. TOPIRAMATE [Suspect]
     Active Substance: TOPIRAMATE
     Indication: Product used for unknown indication
     Dosage: 25 MILLIGRAM, QD (12.5 MG TWICE A DAY)
     Route: 048
  4. DAPTOMYCIN [Suspect]
     Active Substance: DAPTOMYCIN
     Indication: Product used for unknown indication
     Dosage: 140 MILLIGRAM, QD (DAPTOMYCIN 140 MG/DAY (EXPECTE
     Route: 065
  5. CLOBAZAM [Suspect]
     Active Substance: CLOBAZAM
     Indication: Product used for unknown indication
     Dosage: 2.5 MILLIGRAM, QD
     Route: 048
  6. CLOBAZAM [Suspect]
     Active Substance: CLOBAZAM
     Dosage: 5 MILLIGRAM, QD
     Route: 048
  7. LASIX [Suspect]
     Active Substance: FUROSEMIDE
     Indication: Product used for unknown indication
     Dosage: LASIX 5 MG AS NEEDED (ADMINISTERED 10 M G ON 01/0
     Route: 065
  8. ASPIRIN DL-LYSINE [Suspect]
     Active Substance: ASPIRIN DL-LYSINE
     Indication: Product used for unknown indication
     Dosage: 75 MILLIGRAM, QD (CARDIRENE 75 MG/DAY)
     Route: 048
  9. CALCIFEDIOL [Suspect]
     Active Substance: CALCIFEDIOL
     Indication: Product used for unknown indication
     Dosage: QD  (DIHYDROGYL 3 DROPS/DAY)
     Route: 048
  10. VALPROATE SODIUM [Suspect]
     Active Substance: VALPROATE SODIUM
     Indication: Product used for unknown indication
     Dosage: 500 MILLIGRAM, QD (DEPAKIN SACHETS: 250 MG X 2 TI
     Route: 048
  11. ETHOSUXIMIDE [Suspect]
     Active Substance: ETHOSUXIMIDE
     Indication: Product used for unknown indication
     Dosage: 250 MG + 300 MG (ADDITIONAL STOPOVER PLANNED)
     Route: 048
  12. MEROPENEM [Suspect]
     Active Substance: MEROPENEM
     Indication: Product used for unknown indication
     Dosage: MERREM 600 MG X 3 TIMES/DAY (EXPECTED THROUGH 6/7
     Route: 065

REACTIONS (1)
  - Oliguria [Not Recovered/Not Resolved]

NARRATIVE: CASE EVENT DATE: 20230528
